FAERS Safety Report 17481640 (Version 2)
Quarter: 2020Q4

REPORT INFORMATION
  Report Type: Report from Study
  Country: FR (occurrence: FR)
  Receive Date: 20200302
  Receipt Date: 20201222
  Transmission Date: 20210113
  Serious: Yes (Death, Other)
  Sender: FDA-Public Use
  Company Number: FR-AUROBINDO-AUR-APL-2020-011127

PATIENT
  Age: 61 Year
  Sex: Female

DRUGS (5)
  1. HUMAN IMMUNOGLOBULIN (IMMUNOGLOBULIN HUMAN NORMAL) [Suspect]
     Active Substance: HUMAN IMMUNOGLOBULIN G
     Indication: LICHEN MYXOEDEMATOSUS
     Dosage: 1 UNK, 1 MONTH
     Route: 042
  2. DEXAMETHASONE. [Suspect]
     Active Substance: DEXAMETHASONE
     Indication: LICHEN MYXOEDEMATOSUS
     Dosage: 40 MILLIGRAM
     Route: 048
  3. IMMUNGLOBULIN (IMMUNOGLOBULIN HUMAN NORMAL) [Suspect]
     Active Substance: HUMAN IMMUNOGLOBULIN G
     Indication: LICHEN MYXOEDEMATOSUS
     Dosage: 2 GRAM PER KILOGRAM
     Route: 042
  4. MELPHALAN. [Suspect]
     Active Substance: MELPHALAN
     Indication: LICHEN MYXOEDEMATOSUS
     Dosage: 10 MILLIGRAM/SQ. METER
     Route: 048
  5. BORTEZOMIB. [Suspect]
     Active Substance: BORTEZOMIB
     Indication: LICHEN MYXOEDEMATOSUS
     Dosage: 1.3 MILLIGRAM/SQ. METER
     Route: 042

REACTIONS (6)
  - Drug ineffective [Fatal]
  - Product use in unapproved indication [Fatal]
  - Sepsis [Fatal]
  - Cardiac failure acute [Fatal]
  - Drug ineffective for unapproved indication [Fatal]
  - Therapy non-responder [Unknown]
